FAERS Safety Report 5719024-7 (Version None)
Quarter: 2008Q2

REPORT INFORMATION
  Report Type: 
  Country: None (occurrence: None)
  Receive Date: 20080425
  Receipt Date: 20080417
  Transmission Date: 20081010
  Serious: Yes (Other)
  Sender: FDA-Public Use
  Company Number: PHHY2008GB06139

PATIENT
  Sex: Female

DRUGS (1)
  1. SANDOSTATIN LAR [Suspect]
     Route: 030

REACTIONS (2)
  - AORTIC VALVE REPLACEMENT [None]
  - INJECTION SITE HAEMORRHAGE [None]
